FAERS Safety Report 20874325 (Version 1)
Quarter: 2022Q2

REPORT INFORMATION
  Report Type: Spontaneous
  Country: US (occurrence: None)
  Receive Date: 20220525
  Receipt Date: 20220525
  Transmission Date: 20220720
  Serious: No
  Sender: FDA-Public Use
  Company Number: None

PATIENT
  Age: 70 Year
  Sex: Female
  Weight: 77.56 kg

DRUGS (15)
  1. IBRANCE [Suspect]
     Active Substance: PALBOCICLIB
     Indication: Breast cancer female
     Dosage: OTHER FREQUENCY : 75 MG 21 DAYS ON  AND 7 DAYS OFF?
     Route: 048
     Dates: start: 20220201
  2. ASPIRIN [Concomitant]
     Active Substance: ASPIRIN
  3. CALTRATE [Concomitant]
     Active Substance: CALCIUM CARBONATE
  4. CELEBREX [Concomitant]
     Active Substance: CELECOXIB
  5. COLACE [Concomitant]
     Active Substance: DOCUSATE SODIUM
  6. CYCLOBENZAPRINE [Concomitant]
     Active Substance: CYCLOBENZAPRINE
  7. FEMARA [Concomitant]
     Active Substance: LETROZOLE
  8. LEXAPRO [Concomitant]
     Active Substance: ESCITALOPRAM OXALATE
  9. METOPROLOL [Concomitant]
     Active Substance: METOPROLOL
  10. MORPHINE [Concomitant]
     Active Substance: MORPHINE
  11. VITAMINS [Concomitant]
     Active Substance: VITAMINS
  12. NAPROXEN [Concomitant]
     Active Substance: NAPROXEN
  13. PIQRAY [Concomitant]
     Active Substance: ALPELISIB
  14. XANAX [Concomitant]
     Active Substance: ALPRAZOLAM
  15. ZOFRAN [Concomitant]
     Active Substance: ONDANSETRON HYDROCHLORIDE

REACTIONS (1)
  - Disease progression [None]
